FAERS Safety Report 7825312-0 (Version None)
Quarter: 2011Q4

REPORT INFORMATION
  Report Type: 
  Country: None (occurrence: None)
  Receive Date: 20111019
  Receipt Date: 20111012
  Transmission Date: 20120403
  Serious: Yes (Disabling)
  Sender: FDA-Public Use
  Company Number: GB-GLAXOSMITHKLINE-B0754641A

PATIENT
  Age: 23 Year
  Sex: Female
  Weight: 67.5 kg

DRUGS (13)
  1. CLOMIPRAMINE HCL [Concomitant]
     Dates: start: 20110613, end: 20110711
  2. LORAZEPAM [Concomitant]
     Dates: start: 20110812, end: 20110826
  3. CEPHALEXIN [Concomitant]
     Dates: start: 20110829, end: 20110905
  4. CLOMIPRAMINE HCL [Concomitant]
     Dates: start: 20110812, end: 20110909
  5. CHLORDIAZEPOXIDE [Concomitant]
     Dates: start: 20110927
  6. ONDANSETRON [Suspect]
  7. CYCLIZINE [Concomitant]
     Dates: start: 20110812, end: 20110813
  8. PROCHLORPERAZINE [Concomitant]
     Dates: start: 20110829, end: 20110902
  9. ERYTHROMYCIN ETHYLSUCCINATE [Concomitant]
     Dates: start: 20110909, end: 20110914
  10. CYCLIZINE [Concomitant]
     Dates: start: 20110830, end: 20110831
  11. GAVISCON [Concomitant]
     Dates: start: 20110812, end: 20110909
  12. PROCHLORPERAZINE [Concomitant]
     Dates: start: 20110909, end: 20110910
  13. METOCLOPRAMIDE [Concomitant]
     Dates: start: 20110914

REACTIONS (1)
  - MORBID THOUGHTS [None]
